FAERS Safety Report 24905752 (Version 2)
Quarter: 2025Q2

REPORT INFORMATION
  Report Type: Spontaneous
  Country: NO (occurrence: NO)
  Receive Date: 20250130
  Receipt Date: 20250414
  Transmission Date: 20250716
  Serious: No
  Sender: FERRING
  Company Number: None

PATIENT

DRUGS (2)
  1. MENOPUR [Suspect]
     Active Substance: FOLLITROPIN\LUTEINIZING HORMONE
     Indication: Assisted fertilisation
     Dosage: 375 INTERNATIONAL UNIT, 1 TIME DAILY
     Route: 058
     Dates: start: 20240824, end: 20240831
  2. GANIRELIX ACETATE [Suspect]
     Active Substance: GANIRELIX ACETATE
     Indication: Assisted fertilisation
     Dosage: 0.25 MG, DAILY
     Route: 058
     Dates: start: 20240829, end: 20240901

REACTIONS (3)
  - Ill-defined disorder [Recovered/Resolved]
  - Cardiac disorder [Recovered/Resolved]
  - Hypotension [Recovered/Resolved]

NARRATIVE: CASE EVENT DATE: 20241015
